FAERS Safety Report 6293834-2 (Version None)
Quarter: 2009Q3

REPORT INFORMATION
  Report Type: 
  Country: None (occurrence: None)
  Receive Date: 20090803
  Receipt Date: 20090724
  Transmission Date: 20100115
  Serious: Yes (Death, Hospitalization)
  Sender: FDA-Public Use
  Company Number: JP-AMGEN-US356331

PATIENT
  Sex: Male
  Weight: 64 kg

DRUGS (8)
  1. ENBREL [Suspect]
     Indication: RHEUMATOID ARTHRITIS
     Dosage: 25 MG, ONCE EVERY 1-2 WEEKS
     Route: 058
     Dates: start: 20051112, end: 20090530
  2. FOLIAMIN [Concomitant]
     Indication: PROPHYLAXIS
     Route: 048
     Dates: start: 20050106, end: 20090617
  3. VOLTAREN [Concomitant]
     Indication: ANALGESIA
     Route: 054
     Dates: start: 20050125, end: 20090617
  4. PREDNISOLONE [Concomitant]
     Indication: RHEUMATOID ARTHRITIS
     Dosage: DOSE RANGE 4-10 MG/DAY
     Route: 048
     Dates: start: 20050106, end: 20090617
  5. DICLOFENAC SODIUM [Concomitant]
     Indication: ANALGESIA
     Route: 048
     Dates: start: 20050107, end: 20090617
  6. CYTOTEC [Concomitant]
     Indication: PROPHYLAXIS AGAINST GASTROINTESTINAL ULCER
     Route: 048
     Dates: start: 20050107, end: 20090617
  7. METOLATE [Concomitant]
     Indication: RHEUMATOID ARTHRITIS
     Dosage: DOSE RANGE OF 8-12 MG, ONCE PER WEEK
     Route: 048
     Dates: start: 20050106, end: 20090617
  8. RIMATIL [Concomitant]
     Indication: RHEUMATOID ARTHRITIS
     Route: 048
     Dates: start: 20081101, end: 20090617

REACTIONS (9)
  - ACUTE RESPIRATORY FAILURE [None]
  - BRONCHOPNEUMONIA [None]
  - CANDIDIASIS [None]
  - GAIT DISTURBANCE [None]
  - INAPPROPRIATE SCHEDULE OF DRUG ADMINISTRATION [None]
  - NASOPHARYNGITIS [None]
  - PNEUMONIA [None]
  - PNEUMOTHORAX [None]
  - STAPHYLOCOCCAL INFECTION [None]
